FAERS Safety Report 22180406 (Version 1)
Quarter: 2023Q2

REPORT INFORMATION
  Report Type: Report from Study
  Country: CA (occurrence: CA)
  Receive Date: 20230406
  Receipt Date: 20230406
  Transmission Date: 20230722
  Serious: Yes (Hospitalization)
  Sender: FDA-Public Use
  Company Number: CA-JNJFOC-20220712256

PATIENT
  Age: 7 Decade
  Sex: Male
  Weight: 85 kg

DRUGS (1)
  1. REMICADE [Suspect]
     Active Substance: INFLIXIMAB
     Indication: Crohn^s disease
     Dosage: PATIENT LAST INFUSION ON 08-JUN-2022
     Route: 041
     Dates: start: 20200223

REACTIONS (2)
  - Abdominal hernia [Unknown]
  - Anger [Unknown]
